FAERS Safety Report 15462312 (Version 27)
Quarter: 2025Q2

REPORT INFORMATION
  Report Type: Spontaneous
  Country: CA (occurrence: CA)
  Receive Date: 20181004
  Receipt Date: 20250424
  Transmission Date: 20250716
  Serious: Yes (Death, Life-Threatening, Hospitalization, Disabling, Other)
  Sender: ALEXION PHARMACEUTICALS
  Company Number: 2017SE55839

PATIENT
  Age: 44 Year
  Weight: 63 kg

DRUGS (5)
  1. ESOMEPRAZOLE MAGNESIUM [Suspect]
     Active Substance: ESOMEPRAZOLE MAGNESIUM
     Indication: Product used for unknown indication
  2. ESOMEPRAZOLE MAGNESIUM [Suspect]
     Active Substance: ESOMEPRAZOLE MAGNESIUM
     Indication: Rheumatoid arthritis
     Route: 065
  3. ESOMEPRAZOLE MAGNESIUM [Suspect]
     Active Substance: ESOMEPRAZOLE MAGNESIUM
     Indication: Rheumatoid arthritis
  4. VIMOVO [Suspect]
     Active Substance: ESOMEPRAZOLE MAGNESIUM\NAPROXEN
     Indication: Product used for unknown indication
  5. VIMOVO [Suspect]
     Active Substance: ESOMEPRAZOLE MAGNESIUM\NAPROXEN

REACTIONS (116)
  - Antinuclear antibody positive [Fatal]
  - Atelectasis [Fatal]
  - Cushingoid [Fatal]
  - Dry eye [Fatal]
  - Fibromyalgia [Fatal]
  - Flank pain [Fatal]
  - Impaired work ability [Fatal]
  - Interstitial lung disease [Fatal]
  - Joint effusion [Fatal]
  - Lung disorder [Fatal]
  - Nodule [Fatal]
  - Pleuritic pain [Fatal]
  - Rheumatoid nodule [Fatal]
  - Scleritis [Fatal]
  - Wheezing [Fatal]
  - Tenderness [Fatal]
  - Tenosynovitis stenosans [Fatal]
  - Photophobia [Fatal]
  - Bursitis [Fatal]
  - Crepitations [Fatal]
  - Eye pain [Fatal]
  - Feeling jittery [Fatal]
  - Musculoskeletal stiffness [Fatal]
  - Neoplasm malignant [Fatal]
  - Synovial cyst [Fatal]
  - Synovial fluid analysis [Fatal]
  - Thrombosis [Fatal]
  - Visual impairment [Fatal]
  - Red blood cell count decreased [Fatal]
  - Pain [Fatal]
  - Rheumatoid arthritis [Fatal]
  - Haemoglobin decreased [Fatal]
  - Joint swelling [Fatal]
  - Musculoskeletal pain [Fatal]
  - Eye irritation [Fatal]
  - Pain in extremity [Fatal]
  - Ocular hyperaemia [Fatal]
  - Dry mouth [Fatal]
  - Malaise [Fatal]
  - Nausea [Fatal]
  - Pneumonia [Fatal]
  - Infection [Fatal]
  - Rash [Fatal]
  - Pruritus [Fatal]
  - Dyspnoea [Fatal]
  - Arthralgia [Fatal]
  - Abdominal pain [Fatal]
  - Erythema [Fatal]
  - Peripheral swelling [Fatal]
  - Swelling face [Fatal]
  - Contraindicated product administered [Fatal]
  - Arthralgia [Fatal]
  - Arthritis [Fatal]
  - Back pain [Fatal]
  - Inflammation [Fatal]
  - Drug ineffective [Fatal]
  - Treatment failure [Fatal]
  - Allergy to chemicals [Fatal]
  - Bone density decreased [Fatal]
  - C-reactive protein increased [Fatal]
  - Deformity [Fatal]
  - Diarrhoea [Fatal]
  - Dizziness [Fatal]
  - Drug intolerance [Fatal]
  - Fatigue [Fatal]
  - Feeling abnormal [Fatal]
  - Hand deformity [Fatal]
  - Joint range of motion decreased [Fatal]
  - Liver disorder [Fatal]
  - Muscular weakness [Fatal]
  - Myalgia [Fatal]
  - Pulmonary toxicity [Fatal]
  - Rash maculo-papular [Fatal]
  - Rash pruritic [Fatal]
  - Tenosynovitis [Fatal]
  - Upper respiratory tract infection [Fatal]
  - White blood cell count decreased [Fatal]
  - Conjunctivitis [Fatal]
  - Skin ulcer [Fatal]
  - Synovial disorder [Fatal]
  - Off label use [Fatal]
  - Therapeutic product effect decreased [Fatal]
  - Arthropathy [Fatal]
  - Drug hypersensitivity [Fatal]
  - Hepatotoxicity [Fatal]
  - Condition aggravated [Fatal]
  - Joint injury [Fatal]
  - Therapeutic product effect incomplete [Fatal]
  - Joint stiffness [Fatal]
  - Gastrointestinal toxicity [Fatal]
  - Quality of life decreased [Fatal]
  - Swelling [Fatal]
  - Therapy non-responder [Fatal]
  - Haemoglobin increased [Fatal]
  - Hepatic enzyme decreased [Fatal]
  - Red blood cell sedimentation rate decreased [Fatal]
  - Swelling face [Fatal]
  - Duodenal ulcer perforation [Fatal]
  - Facet joint syndrome [Fatal]
  - Folliculitis [Fatal]
  - General physical health deterioration [Fatal]
  - Glossodynia [Fatal]
  - Hypertension [Fatal]
  - Hypoaesthesia [Fatal]
  - Infusion related reaction [Fatal]
  - Medication error [Fatal]
  - Pyrexia [Fatal]
  - Road traffic accident [Fatal]
  - Sciatica [Fatal]
  - Sinusitis [Fatal]
  - Sleep disorder [Fatal]
  - Systemic lupus erythematosus [Fatal]
  - Type 2 diabetes mellitus [Fatal]
  - Weight decreased [Fatal]
  - Helicobacter infection [Fatal]
  - Impaired healing [Fatal]
